FAERS Safety Report 23911195 (Version 1)
Quarter: 2024Q2

REPORT INFORMATION
  Report Type: Spontaneous
  Country: US (occurrence: US)
  Receive Date: 20240528
  Receipt Date: 20240528
  Transmission Date: 20240716
  Serious: Yes (Other)
  Sender: FDA-Public Use
  Company Number: US-BRISTOL-MYERS SQUIBB COMPANY-2024-079897

PATIENT
  Age: 42 Year
  Sex: Male

DRUGS (1)
  1. DASATINIB [Suspect]
     Active Substance: DASATINIB
     Indication: Acute lymphocytic leukaemia
     Dosage: DOSE : UNAVAILABLE, NOT PROVIDED;     FREQ : UNAVAILABLE, NOT PROVIDED IN EMAIL.

REACTIONS (2)
  - Renal failure [Unknown]
  - Pulmonary oedema [Unknown]
